FAERS Safety Report 4605862-0 (Version None)
Quarter: 2005Q1

REPORT INFORMATION
  Report Type: 
  Country: None (occurrence: None)
  Receive Date: 20050214
  Receipt Date: 20041025
  Transmission Date: 20050727
  Serious: No
  Sender: FDA-Public Use
  Company Number: USA041081598

PATIENT
  Age: 71 Year
  Sex: Male
  Weight: 75 kg

DRUGS (2)
  1. CIALIS [Suspect]
     Dosage: 10 MG
     Dates: start: 20041018
  2. RAMIPRIL [Concomitant]

REACTIONS (1)
  - DRUG INEFFECTIVE [None]
